FAERS Safety Report 16263067 (Version 1)
Quarter: 2019Q2

REPORT INFORMATION
  Report Type: Spontaneous
  Country: SE (occurrence: SE)
  Receive Date: 20190502
  Receipt Date: 20190502
  Transmission Date: 20190711
  Serious: Yes (Other)
  Sender: FDA-Public Use
  Company Number: SE-TEVA-2019-SE-1045695

PATIENT
  Sex: Female

DRUGS (1)
  1. PREDNISOLON ACTAVIS [Suspect]
     Active Substance: PREDNISOLONE
     Route: 065

REACTIONS (3)
  - Small intestine ulcer [Unknown]
  - Bacterial infection [Unknown]
  - Pneumonia [Unknown]
